FAERS Safety Report 16236772 (Version 1)
Quarter: 2019Q2

REPORT INFORMATION
  Report Type: Spontaneous
  Country: RO (occurrence: RO)
  Receive Date: 20190425
  Receipt Date: 20190425
  Transmission Date: 20190711
  Serious: Yes (Disabling, Other)
  Sender: FDA-Public Use
  Company Number: RO-AMGEN-ROUSP2019064674

PATIENT
  Sex: Male

DRUGS (1)
  1. VECTIBIX [Suspect]
     Active Substance: PANITUMUMAB
     Indication: COLON CANCER
     Dosage: UNK (6 MG/KG)
     Route: 042
     Dates: start: 201805

REACTIONS (10)
  - Photosensitivity reaction [Not Recovered/Not Resolved]
  - Staphylococcal infection [Not Recovered/Not Resolved]
  - Trichomegaly [Unknown]
  - Skin disorder [Not Recovered/Not Resolved]
  - Rash pustular [Not Recovered/Not Resolved]
  - Trichorrhexis [Unknown]
  - Xerosis [Not Recovered/Not Resolved]
  - Paronychia [Unknown]
  - Poikiloderma [Not Recovered/Not Resolved]
  - Telangiectasia [Not Recovered/Not Resolved]
